FAERS Safety Report 19266829 (Version 2)
Quarter: 2021Q2

REPORT INFORMATION
  Report Type: Spontaneous
  Country: FR (occurrence: FR)
  Receive Date: 20210518
  Receipt Date: 20210526
  Transmission Date: 20210717
  Serious: Yes (Hospitalization)
  Sender: FDA-Public Use
  Company Number: FR-ORION CORPORATION ORION PHARMA-TREX2021-0024

PATIENT
  Age: 78 Year
  Sex: Male

DRUGS (3)
  1. CORTANCYL [Concomitant]
     Active Substance: PREDNISONE
     Route: 065
  2. METHOTREXATE (TRADE NAME UNKNOWN) [Suspect]
     Active Substance: METHOTREXATE
     Indication: RHEUMATOID ARTHRITIS
     Route: 048
     Dates: start: 20210226, end: 20210312
  3. UROREC [Concomitant]
     Active Substance: SILODOSIN
     Route: 065

REACTIONS (4)
  - Product use issue [Recovered/Resolved]
  - Mucosal inflammation [Recovering/Resolving]
  - Pancytopenia [Recovered/Resolved]
  - Urinary retention [Not Recovered/Not Resolved]

NARRATIVE: CASE EVENT DATE: 20210226
